FAERS Safety Report 8865471 (Version 1)
Quarter: 2012Q4

REPORT INFORMATION
  Report Type: 
  Country: US (occurrence: US)
  Receive Date: 20121024
  Receipt Date: 20121024
  Transmission Date: 20130627
  Serious: No
  Sender: FDA-Public Use
  Company Number: US-AMGEN-USASP2012003200

PATIENT
  Sex: Female

DRUGS (4)
  1. ENBREL [Suspect]
     Indication: PRODUCT USED FOR UNKNOWN INDICATION
     Dosage: 50 mg, qwk
  2. ALLEGRA [Concomitant]
     Dosage: 30 mg, UNK
     Route: 048
  3. METOPROLOL [Concomitant]
     Dosage: 200 mg, UNK
     Route: 048
  4. IBUPROFEN [Concomitant]
     Dosage: 200 mg, UNK
     Route: 048

REACTIONS (1)
  - Therapeutic response decreased [Unknown]
